FAERS Safety Report 5560704-4 (Version None)
Quarter: 2007Q4

REPORT INFORMATION
  Report Type: 
  Country: None (occurrence: None)
  Receive Date: 20071215
  Receipt Date: 20071114
  Transmission Date: 20080405
  Serious: No
  Sender: FDA-Public Use
  Company Number: US-ABBOTT-07P-163-0425425-00

PATIENT
  Sex: Male
  Weight: 92.616 kg

DRUGS (3)
  1. HUMIRA [Suspect]
     Indication: CROHN'S DISEASE
     Route: 058
     Dates: start: 20071027, end: 20071111
  2. HUMIRA [Suspect]
     Route: 058
     Dates: start: 20071111, end: 20071126
  3. HUMIRA [Suspect]
     Route: 058
     Dates: start: 20071126

REACTIONS (1)
  - FATIGUE [None]
